FAERS Safety Report 4636879-8 (Version None)
Quarter: 2005Q2

REPORT INFORMATION
  Report Type: 
  Country: None (occurrence: None)
  Receive Date: 20050415
  Receipt Date: 20050411
  Transmission Date: 20051028
  Serious: Yes (Disabling)
  Sender: FDA-Public Use
  Company Number: US-MERCK-0504USA01439

PATIENT
  Age: 46 Year
  Sex: Female

DRUGS (2)
  1. ZOCOR [Suspect]
     Indication: BLOOD CHOLESTEROL INCREASED
     Route: 048
     Dates: start: 20040401, end: 20050401
  2. HYDRODIURIL [Concomitant]
     Route: 048

REACTIONS (4)
  - ARTHRALGIA [None]
  - HYPERTENSION [None]
  - MYALGIA [None]
  - PAIN IN EXTREMITY [None]
